FAERS Safety Report 9383859 (Version 2)
Quarter: 2013Q3

REPORT INFORMATION
  Report Type: Spontaneous
  Country: FR (occurrence: FR)
  Receive Date: 20130704
  Receipt Date: 20130719
  Transmission Date: 20140515
  Serious: Yes (Hospitalization, Other)
  Sender: FDA-Public Use
  Company Number: FR-009507513-1307FRA000862

PATIENT
  Age: 63 Year
  Sex: Female

DRUGS (20)
  1. FOSAVANCE [Suspect]
     Indication: OSTEOPOROSIS POSTMENOPAUSAL
     Dosage: 1 DF, QW
     Route: 048
     Dates: end: 200712
  2. CORTANCYL [Suspect]
     Indication: RHEUMATOID ARTHRITIS
     Dosage: 1 DF, TID
     Route: 048
  3. HYDROCORTISONE [Suspect]
     Indication: RHEUMATOID ARTHRITIS
     Dosage: 1 DF, BID
     Route: 048
  4. SERETIDE [Concomitant]
     Indication: RESPIRATORY FAILURE
     Dosage: 2 DF, QD
     Route: 055
     Dates: start: 20080227
  5. FLIXONASE [Concomitant]
     Indication: RHINITIS ALLERGIC
     Dosage: 2 DF, QD
     Route: 045
     Dates: start: 20080227
  6. LYRICA [Concomitant]
     Indication: PRODUCT USED FOR UNKNOWN INDICATION
     Dosage: 75 MG, TID
     Route: 048
  7. PLAVIX [Concomitant]
     Indication: ISCHAEMIC HEART DISEASE PROPHYLAXIS
     Dosage: 1 DF, QD
     Route: 048
     Dates: end: 20080418
  8. VERAPAMIL HYDROCHLORIDE [Concomitant]
     Indication: ISCHAEMIC HEART DISEASE PROPHYLAXIS
     Dosage: 1 DF, BID
     Route: 048
  9. FUROSEMIDE [Concomitant]
     Indication: BLOOD PRESSURE
     Dosage: UNK
     Route: 048
  10. TAREG [Concomitant]
     Indication: BLOOD PRESSURE
     Dosage: 1 DF, QD
     Route: 048
  11. STILNOX [Concomitant]
     Indication: INSOMNIA
     Dosage: 1 DF, QD
     Route: 048
  12. NISIS [Concomitant]
     Indication: BLOOD PRESSURE
     Dosage: UNK
     Route: 048
     Dates: end: 20080118
  13. PROTELOS [Concomitant]
     Indication: OSTEOPOROSIS POSTMENOPAUSAL
     Dosage: 1 DF, QD
     Route: 048
     Dates: start: 200801
  14. INEXIUM [Concomitant]
     Indication: PRODUCT USED FOR UNKNOWN INDICATION
     Dosage: 1 DF, QD
     Route: 048
  15. PROPOFAN (ACETAMINOPHEN (+) CAFFEINE (+) PROPOXYPHENE HYDROCHLORIDE) [Concomitant]
     Indication: PAIN
     Dosage: 2 DF, QID
  16. SPIRIVA [Concomitant]
     Indication: RESPIRATORY FAILURE
     Dosage: 1 DF, QD
     Route: 055
     Dates: start: 200801
  17. BRONCHODUAL [Concomitant]
     Indication: RESPIRATORY FAILURE
     Dosage: 3 DF, QD
     Route: 055
     Dates: start: 200801
  18. SOLMUCOL [Concomitant]
     Indication: BRONCHIAL OBSTRUCTION
     Dosage: 3 DF, QD
     Route: 048
     Dates: start: 20080227
  19. VOLTAREN EMULGEL [Concomitant]
     Indication: PRODUCT USED FOR UNKNOWN INDICATION
     Dosage: UNK
     Route: 061
     Dates: start: 200801
  20. TOPLEXIL (OXOMEMAZINE) [Concomitant]
     Indication: COUGH
     Dosage: UNK
     Route: 048
     Dates: start: 20080227

REACTIONS (1)
  - Osteonecrosis [Unknown]
